FAERS Safety Report 4445094-2 (Version None)
Quarter: 2004Q3

REPORT INFORMATION
  Report Type: 
  Country: None (occurrence: None)
  Receive Date: 20040903
  Receipt Date: 20040823
  Transmission Date: 20050211
  Serious: Yes (Hospitalization)
  Sender: FDA-Public Use
  Company Number: 200411586BCC

PATIENT
  Age: 28 Year
  Sex: Male
  Weight: 90.7194 kg

DRUGS (2)
  1. ALEVE [Suspect]
     Indication: HEADACHE
     Dosage: 440 MG, QD, ORAL
     Route: 048
     Dates: start: 20040315, end: 20040316
  2. PREVACID [Concomitant]

REACTIONS (6)
  - AUTOIMMUNE DISORDER [None]
  - BEHCET'S SYNDROME [None]
  - ERYTHEMA MULTIFORME [None]
  - GENITAL LESION [None]
  - MOUTH ULCERATION [None]
  - SINUSITIS [None]
